FAERS Safety Report 13984264 (Version 1)
Quarter: 2017Q3

REPORT INFORMATION
  Report Type: Spontaneous
  Country: CH (occurrence: CH)
  Receive Date: 20170918
  Receipt Date: 20170918
  Transmission Date: 20171128
  Serious: Yes (Hospitalization)
  Sender: FDA-Public Use
  Company Number: CH-B. BRAUN MEDICAL INC.-2026695

PATIENT
  Age: 59 Year
  Sex: Male
  Weight: 98.5 kg

DRUGS (3)
  1. HEPARIN SODIUM AND DEXTROSE [Suspect]
     Active Substance: HEPARIN SODIUM
     Indication: PROPHYLAXIS
     Dates: start: 20161231, end: 20170106
  2. CARVEDILOL. [Concomitant]
     Active Substance: CARVEDILOL
  3. LISINOPRIL. [Concomitant]
     Active Substance: LISINOPRIL

REACTIONS (3)
  - Heparin-induced thrombocytopenia [Recovering/Resolving]
  - Pulmonary embolism [None]
  - Venous thrombosis [None]

NARRATIVE: CASE EVENT DATE: 20170109
